FAERS Safety Report 8383057-5 (Version None)
Quarter: 2012Q1

REPORT INFORMATION
  Report Type: 
  Country: None (occurrence: None)
  Receive Date: 20120323
  Receipt Date: 20110523
  Transmission Date: 20120608
  Serious: Yes (Other)
  Sender: FDA-Public Use
  Company Number: 163-21880-11051516

PATIENT
  Age: 60 Year
  Sex: Female

DRUGS (10)
  1. TYLENOL W/ CODEINE NO. 3 [Concomitant]
  2. TRAZODONE HCL [Concomitant]
  3. REVLIMID [Suspect]
     Indication: MYELODYSPLASTIC SYNDROME
     Dosage: 10 MG, QD X 28, PO ; 5 MG, X 28 DAYS, PO
     Route: 048
     Dates: start: 20110401
  4. REVLIMID [Suspect]
     Indication: MYELODYSPLASTIC SYNDROME
     Dosage: 10 MG, QD X 28, PO ; 5 MG, X 28 DAYS, PO
     Route: 048
     Dates: start: 20110501
  5. PREMARIN [Concomitant]
  6. B COMPLEX ELX [Concomitant]
  7. CITALOPRAM HYDROBROMIDE [Concomitant]
  8. PROMETRIUM [Concomitant]
  9. ASCORBIC ACID [Concomitant]
  10. FLURAZEPAM [Concomitant]

REACTIONS (6)
  - NEUTROPENIA [None]
  - PLATELET COUNT DECREASED [None]
  - RASH [None]
  - MOUTH HAEMORRHAGE [None]
  - EPISTAXIS [None]
  - LEUKOPENIA [None]
